FAERS Safety Report 8375751-7 (Version None)
Quarter: 2012Q2

REPORT INFORMATION
  Report Type: 
  Country: None (occurrence: None)
  Receive Date: 20120518
  Receipt Date: 20120518
  Transmission Date: 20120825
  Serious: Yes (Hospitalization)
  Sender: FDA-Public Use
  Company Number: None

PATIENT
  Sex: Male
  Weight: 169 kg

DRUGS (5)
  1. RITUXIMAB (MOAB C2B8 ATI CD20, CHIMERIC) [Suspect]
  2. CYTOXAN [Suspect]
  3. VINCRISTINE SULFATE [Suspect]
  4. DOXORUBICIN HYDROCHLORIDE [Suspect]
  5. PREDNISONE TAB [Suspect]

REACTIONS (9)
  - CONJUNCTIVITIS [None]
  - BLOOD CULTURE POSITIVE [None]
  - DEVICE RELATED INFECTION [None]
  - OROPHARYNGEAL PAIN [None]
  - STAPHYLOCOCCAL INFECTION [None]
  - PYREXIA [None]
  - EAR PAIN [None]
  - COUGH [None]
  - INFLUENZA LIKE ILLNESS [None]
